FAERS Safety Report 9122417 (Version 4)
Quarter: 2014Q1

REPORT INFORMATION
  Report Type: Spontaneous
  Country: US (occurrence: US)
  Receive Date: 20130115
  Receipt Date: 20140306
  Transmission Date: 20141002
  Serious: Yes (Hospitalization, Disabling, Other)
  Sender: FDA-Public Use
  Company Number: US-009507513-1301USA005304

PATIENT
  Sex: Female
  Weight: 52.15 kg

DRUGS (13)
  1. FOSAMAX [Suspect]
     Indication: OSTEOPENIA
     Dosage: 70 MG, UNK
     Route: 048
     Dates: start: 20040130, end: 20050922
  2. FOSAMAX PLUS D [Suspect]
     Indication: OSTEOPENIA
     Dosage: 70/2800 MG, UNK
     Route: 048
     Dates: start: 20051024, end: 20101022
  3. IBANDRONATE SODIUM [Suspect]
     Indication: PRODUCT USED FOR UNKNOWN INDICATION
     Dosage: UNK
     Dates: start: 2004, end: 2010
  4. ORTHO NOVUM (MESTRANOL (+) NORETHINDRONE) [Concomitant]
     Indication: PRODUCT USED FOR UNKNOWN INDICATION
     Dosage: UNK
     Dates: start: 199711
  5. NECON 7/7/7 [Concomitant]
     Indication: PRODUCT USED FOR UNKNOWN INDICATION
     Dosage: UNK
     Dates: start: 199711
  6. PREMPRO [Concomitant]
     Indication: PRODUCT USED FOR UNKNOWN INDICATION
     Dosage: UNK
     Dates: start: 199711
  7. PREDNISONE [Concomitant]
     Indication: ASTHMA
     Dosage: UNK
     Dates: start: 1998
  8. METHYLPREDNISOLONE [Concomitant]
     Indication: ASTHMA
     Dosage: UNK
     Dates: start: 1998
  9. DEXAMETHASONE [Concomitant]
     Indication: ASTHMA
     Dosage: UNK
     Dates: start: 1998
  10. RHINOCORT (BUDESONIDE) [Concomitant]
     Indication: ASTHMA
     Dosage: UNK
     Dates: start: 1998
  11. BUDESONIDE [Concomitant]
     Indication: ASTHMA
     Dosage: UNK
     Dates: start: 1998
  12. ADVAIR [Concomitant]
     Indication: ASTHMA
     Dosage: UNK
     Dates: start: 1998
  13. LIPITOR [Concomitant]
     Indication: HYPERLIPIDAEMIA
     Dosage: UNK
     Dates: start: 200406

REACTIONS (7)
  - Femur fracture [Recovering/Resolving]
  - Intramedullary rod insertion [Recovered/Resolved]
  - Fall [Unknown]
  - Osteoporosis [Not Recovered/Not Resolved]
  - Low turnover osteopathy [Not Recovered/Not Resolved]
  - Nausea [Not Recovered/Not Resolved]
  - Vomiting [Not Recovered/Not Resolved]
